FAERS Safety Report 14020444 (Version 1)
Quarter: 2017Q3

REPORT INFORMATION
  Report Type: Spontaneous
  Country: DE (occurrence: DE)
  Receive Date: 20170928
  Receipt Date: 20170928
  Transmission Date: 20171128
  Serious: Yes (Other)
  Sender: FDA-Public Use
  Company Number: DE-BAYER-2017-183307

PATIENT
  Age: 39 Year
  Sex: Female

DRUGS (1)
  1. MIRENA [Suspect]
     Active Substance: LEVONORGESTREL
     Indication: CONTRACEPTION
     Dosage: 20 MCG/24HR, CONT
     Route: 015
     Dates: start: 20100813, end: 20140604

REACTIONS (20)
  - Depression [Recovered/Resolved]
  - Seborrhoea [Not Recovered/Not Resolved]
  - Aggression [Recovered/Resolved]
  - Mental disorder [Not Recovered/Not Resolved]
  - Autoimmune thyroiditis [Not Recovered/Not Resolved]
  - Hirsutism [Not Recovered/Not Resolved]
  - Crying [Recovered/Resolved]
  - Anhedonia [Recovered/Resolved]
  - Back pain [Recovered/Resolved]
  - Alopecia [Not Recovered/Not Resolved]
  - Irritability [Recovered/Resolved]
  - Rosacea [Not Recovered/Not Resolved]
  - Oedema [Not Recovered/Not Resolved]
  - Acne [Not Recovered/Not Resolved]
  - Loss of libido [Recovered/Resolved]
  - Panic attack [Recovered/Resolved]
  - Anxiety disorder [Recovered/Resolved]
  - Temperature intolerance [Not Recovered/Not Resolved]
  - Mood swings [Recovered/Resolved]
  - Asthenia [Not Recovered/Not Resolved]

NARRATIVE: CASE EVENT DATE: 20100815
